FAERS Safety Report 14557718 (Version 1)
Quarter: 2018Q1

REPORT INFORMATION
  Report Type: Spontaneous
  Country: US (occurrence: US)
  Receive Date: 20180220
  Receipt Date: 20180220
  Transmission Date: 20180509
  Serious: No
  Sender: FDA-Public Use
  Company Number: None

PATIENT
  Age: 44 Year
  Sex: Male

DRUGS (1)
  1. SUTENT [Suspect]
     Active Substance: SUNITINIB MALATE

REACTIONS (6)
  - Nausea [None]
  - Anger [None]
  - Fungal infection [None]
  - Depression [None]
  - Mood altered [None]
  - Groin infection [None]

NARRATIVE: CASE EVENT DATE: 20180219
